FAERS Safety Report 10788977 (Version 4)
Quarter: 2015Q2

REPORT INFORMATION
  Report Type: Spontaneous
  Country: US (occurrence: US)
  Receive Date: 20150212
  Receipt Date: 20150608
  Transmission Date: 20150821
  Serious: Yes (Hospitalization, Disabling, Other)
  Sender: FDA-Public Use
  Company Number: US-009507513-1107USA02330

PATIENT
  Sex: Female
  Weight: 125.62 kg

DRUGS (4)
  1. FOSAMAX [Suspect]
     Active Substance: ALENDRONATE SODIUM
     Indication: OSTEOPENIA
     Dosage: 10 MG, UNK
     Route: 048
     Dates: start: 19961111, end: 20010626
  2. ALENDRONATE SODIUM. [Suspect]
     Active Substance: ALENDRONATE SODIUM
     Indication: BONE DENSITY DECREASED
     Dosage: 35 MG, UNK
     Route: 048
     Dates: start: 20090325, end: 20090616
  3. FOSAMAX [Suspect]
     Active Substance: ALENDRONATE SODIUM
     Dosage: 70 MG, QW
     Route: 048
     Dates: start: 20011116, end: 20060314
  4. BONIVA [Suspect]
     Active Substance: IBANDRONATE SODIUM
     Indication: BONE DENSITY DECREASED
     Dosage: 150 MG, UNK
     Route: 048
     Dates: start: 2006, end: 2007

REACTIONS (13)
  - Haemorrhage [Unknown]
  - Diverticulum [Unknown]
  - Femur fracture [Not Recovered/Not Resolved]
  - Medical device removal [Unknown]
  - Weight increased [Unknown]
  - Intramedullary rod insertion [Unknown]
  - Vitamin D deficiency [Unknown]
  - Hyperlipidaemia [Unknown]
  - Fall [Unknown]
  - Bone disorder [Not Recovered/Not Resolved]
  - Muscular weakness [Unknown]
  - Fracture nonunion [Unknown]
  - Stress fracture [Unknown]

NARRATIVE: CASE EVENT DATE: 20070313
